FAERS Safety Report 9838887 (Version 1)
Quarter: 2014Q1

REPORT INFORMATION
  Report Type: Report from Study
  Country: US (occurrence: US)
  Receive Date: 20140123
  Receipt Date: 20140123
  Transmission Date: 20141002
  Serious: Yes (Hospitalization, Other)
  Sender: FDA-Public Use
  Company Number: US-ASTRAZENECA-2014SE03306

PATIENT
  Age: 92 Year
  Sex: Female
  Weight: 61.2 kg

DRUGS (13)
  1. OMEPRAZOLE [Suspect]
     Indication: GASTRITIS
     Route: 048
     Dates: start: 2011, end: 201308
  2. OMEPRAZOLE [Suspect]
     Indication: GASTRITIS
     Route: 048
  3. NEXIUM [Suspect]
     Indication: GASTRITIS
     Route: 048
     Dates: start: 201308
  4. MEDICATIONS [Suspect]
     Route: 065
  5. OXYBUTYNIN [Concomitant]
     Indication: INCONTINENCE
     Route: 048
     Dates: start: 2013
  6. REMERON [Concomitant]
     Indication: APPETITE DISORDER
     Dosage: UNKNOWN DAILY
     Route: 048
     Dates: start: 2013
  7. REMERON [Concomitant]
     Indication: ANTIDEPRESSANT THERAPY
     Dosage: UNKNOWN DAILY
     Route: 048
     Dates: start: 2013
  8. CARAFATE [Concomitant]
     Indication: DYSPEPSIA
     Dosage: UNKNOWN QID
     Route: 048
     Dates: start: 2013
  9. MULTIVITAMIN [Concomitant]
     Indication: SUPPLEMENTATION THERAPY
     Dosage: DAILY
     Route: 048
  10. VITAMIN D [Concomitant]
     Indication: SUPPLEMENTATION THERAPY
     Dosage: UNKNOWN DAILY
     Route: 048
  11. ASPIRIN [Concomitant]
     Indication: PROPHYLAXIS
     Route: 048
  12. MEGACE [Concomitant]
     Indication: APPETITE DISORDER
     Dosage: UNKNOWN UNK
     Route: 048
     Dates: end: 2013
  13. MEDICATION FOR THYROID [Concomitant]
     Indication: THYROID DISORDER

REACTIONS (6)
  - Dyspepsia [Not Recovered/Not Resolved]
  - Chest pain [Recovered/Resolved]
  - Alopecia [Not Recovered/Not Resolved]
  - Intentional drug misuse [Unknown]
  - Off label use [Not Recovered/Not Resolved]
  - Drug ineffective [Recovered/Resolved]
